FAERS Safety Report 5909042-8 (Version None)
Quarter: 2008Q4

REPORT INFORMATION
  Report Type: 
  Country: None (occurrence: None)
  Receive Date: 20081001
  Receipt Date: 20080919
  Transmission Date: 20090506
  Serious: Yes (Other)
  Sender: FDA-Public Use
  Company Number: 2008-00434

PATIENT
  Age: 71 Year
  Sex: Female
  Weight: 55 kg

DRUGS (21)
  1. VELCADE [Suspect]
     Indication: MULTIPLE MYELOMA
     Dosage: 1.9 MG, INTRAVENOUS; 1.5 MG, INTRAVENOUS
     Route: 042
     Dates: start: 20070508, end: 20070518
  2. VELCADE [Suspect]
     Indication: MULTIPLE MYELOMA
     Dosage: 1.9 MG, INTRAVENOUS; 1.5 MG, INTRAVENOUS
     Route: 042
     Dates: start: 20070605, end: 20070615
  3. ITRACONAZOLE [Concomitant]
  4. MAGNESIUM OXIDE (MAGNESIUM OXIDE) [Concomitant]
  5. LENDORM [Concomitant]
  6. VALTREX [Concomitant]
  7. BIOFERMIN R (STREPTOCOCCUS FAECALIS) [Concomitant]
  8. DIFLUCAN [Concomitant]
  9. MAXIPIME [Concomitant]
  10. LEVOFLOXACIN [Concomitant]
  11. SELBEX (TEPRENONE) [Concomitant]
  12. NORVASC [Concomitant]
  13. CANDESARTAN CILEXETIL [Concomitant]
  14. MEROPEN (MEROPENEM) [Concomitant]
  15. RED BLOOD CELLS [Concomitant]
  16. METHYCOBAL (MECOBALAMIN) [Concomitant]
  17. STADERM (IBUPROFEN PICONOL) [Concomitant]
  18. CALONAL (PARACETAMOL) [Concomitant]
  19. SODIUM RISEDROANTE HYDRATE [Concomitant]
  20. SULFAMETHOXAZOLE AND TRIMETHOPRIM [Concomitant]
  21. PLATELETS [Concomitant]

REACTIONS (11)
  - CARDIOMEGALY [None]
  - DIARRHOEA [None]
  - ENTERITIS INFECTIOUS [None]
  - NEUROPATHY PERIPHERAL [None]
  - OEDEMA [None]
  - PANCYTOPENIA [None]
  - PLEURAL EFFUSION [None]
  - PYREXIA [None]
  - RASH [None]
  - VENTRICULAR EXTRASYSTOLES [None]
  - WEIGHT INCREASED [None]
